FAERS Safety Report 17983684 (Version 1)
Quarter: 2020Q3

REPORT INFORMATION
  Report Type: Spontaneous
  Country: US (occurrence: US)
  Receive Date: 20200703
  Receipt Date: 20200703
  Transmission Date: 20201103
  Serious: No
  Sender: FDA-Public Use
  Company Number: None

PATIENT
  Age: 63 Year
  Sex: Female

DRUGS (1)
  1. SOFOSBUVIR/VELSPATASVIR 400/100MG [Suspect]
     Active Substance: SOFOSBUVIR\VELPATASVIR
     Indication: CHRONIC HEPATITIS C
     Dosage: ?          OTHER DOSE:400MG/100MG ;?
     Dates: start: 20200622

REACTIONS (2)
  - Gastrointestinal pain [None]
  - Muscle spasms [None]

NARRATIVE: CASE EVENT DATE: 20200624
